FAERS Safety Report 13550244 (Version 1)
Quarter: 2017Q2

REPORT INFORMATION
  Report Type: Spontaneous
  Country: IL (occurrence: IL)
  Receive Date: 20170516
  Receipt Date: 20170516
  Transmission Date: 20170830
  Serious: Yes (Other)
  Sender: FDA-Public Use
  Company Number: IL-ELI_LILLY_AND_COMPANY-IL201705005207

PATIENT
  Sex: Male
  Weight: 98 kg

DRUGS (1)
  1. TRULICITY [Suspect]
     Active Substance: DULAGLUTIDE
     Indication: DIABETES MELLITUS
     Dosage: 0.6 MG, WEEKLY (1/W)
     Route: 058
     Dates: start: 201703, end: 201704

REACTIONS (3)
  - Asthenia [Unknown]
  - Oedema [Unknown]
  - Nephrotic syndrome [Recovering/Resolving]
